FAERS Safety Report 8517436-X (Version None)
Quarter: 2012Q3

REPORT INFORMATION
  Report Type: 
  Country: None (occurrence: None)
  Receive Date: 20120718
  Receipt Date: 20120713
  Transmission Date: 20120928
  Serious: No
  Sender: FDA-Public Use
  Company Number: US-PFIZER INC-2012169750

PATIENT
  Sex: Male
  Weight: 100 kg

DRUGS (2)
  1. LYRICA [Suspect]
     Indication: DIABETES MELLITUS
     Dosage: 50 MG,DAILY
     Dates: end: 20120601
  2. LYRICA [Suspect]
     Dosage: 100 MG, DAILY

REACTIONS (2)
  - OFF LABEL USE [None]
  - TREMOR [None]
